FAERS Safety Report 5162571-X (Version None)
Quarter: 2006Q4

REPORT INFORMATION
  Report Type: 
  Country: None (occurrence: None)
  Receive Date: 20061201
  Receipt Date: 20060911
  Transmission Date: 20070319
  Serious: Yes (Death, Hospitalization)
  Sender: FDA-Public Use
  Company Number: PHMT2006CA01780

PATIENT
  Age: 62 Year
  Sex: Female

DRUGS (1)
  1. ZOMETA [Suspect]
     Indication: COLON CANCER
     Dosage: 4MG EVERY 6 WEEKS
     Dates: start: 20060309

REACTIONS (4)
  - DEATH [None]
  - PAIN [None]
  - SPINAL DISORDER [None]
  - SURGERY [None]
